FAERS Safety Report 6249198-3 (Version None)
Quarter: 2009Q2

REPORT INFORMATION
  Report Type: 
  Country: None (occurrence: None)
  Receive Date: 20090629
  Receipt Date: 20090625
  Transmission Date: 20091009
  Serious: Yes (Death)
  Sender: FDA-Public Use
  Company Number: PHEH2009US05815

PATIENT
  Sex: Male
  Weight: 84 kg

DRUGS (1)
  1. EXJADE [Suspect]
     Indication: ACUTE MYELOID LEUKAEMIA
     Dosage: 750 MG, QD
     Route: 048
     Dates: start: 20090205

REACTIONS (2)
  - ACUTE MYELOID LEUKAEMIA [None]
  - MALIGNANT NEOPLASM PROGRESSION [None]
